FAERS Safety Report 10067359 (Version 2)
Quarter: 2014Q2

REPORT INFORMATION
  Report Type: Spontaneous
  Country: US (occurrence: US)
  Receive Date: 20140409
  Receipt Date: 20140409
  Transmission Date: 20141212
  Serious: No
  Sender: FDA-Public Use
  Company Number: US-DRREDDYS-USA/USA/13/0029082

PATIENT
  Age: 63 Year
  Sex: Male
  Weight: 86.26 kg

DRUGS (1)
  1. SILVER SULFADIAZINE [Suspect]
     Indication: THERMAL BURN
     Route: 065
     Dates: start: 20130323

REACTIONS (2)
  - Drug ineffective [Unknown]
  - Product quality issue [Unknown]
